FAERS Safety Report 9646016 (Version 1)
Quarter: 2013Q4

REPORT INFORMATION
  Report Type: Report from Study
  Country: JP (occurrence: JP)
  Receive Date: 20131025
  Receipt Date: 20131025
  Transmission Date: 20140711
  Serious: Yes (Hospitalization)
  Sender: FDA-Public Use
  Company Number: JP-BRISTOL-MYERS SQUIBB COMPANY-19649573

PATIENT
  Age: 40 Year
  Sex: Male

DRUGS (8)
  1. STOCRIN TABS [Suspect]
     Indication: HIV INFECTION
     Dosage: 14JUN04-21DEC04?9DEC05-11JUL11?17JUL09-16OCT09
     Route: 048
     Dates: start: 20040614, end: 20091016
  2. REYATAZ CAPS 300 MG [Suspect]
     Indication: HIV INFECTION
     Dosage: 21DEC04-21JAN05?22JUN05-10MAY07
     Route: 048
     Dates: start: 20041221, end: 20070510
  3. ISENTRESS [Suspect]
     Indication: HIV INFECTION
     Route: 048
     Dates: start: 20091016, end: 20100930
  4. EPIVIR [Suspect]
     Indication: HIV INFECTION
     Dosage: 22JUL05-2AUG05:150MG; 2/DAY?3AUG05-13DEC07:300MG/DAY
     Route: 048
     Dates: start: 20050722, end: 20071213
  5. NORVIR [Suspect]
     Indication: HIV INFECTION
     Dosage: 21DEC04-21JAN05?22JUN05-10MAY07?19JAN07-30JUN11
     Route: 048
     Dates: start: 20041221
  6. VIREAD [Suspect]
     Indication: HIV INFECTION
     Route: 048
     Dates: start: 20050802, end: 20071213
  7. KALETRA TABS [Suspect]
     Indication: HIV INFECTION
     Dosage: 14MAY04-30MAY04:6DF/DAY?11MAY07-16OCT09:4DF/DAY
     Route: 048
     Dates: start: 20040514, end: 20091016
  8. TRUVADA [Suspect]
     Indication: HIV INFECTION
     Dosage: 14DEC07-01OCT10?1JUL11
     Route: 048
     Dates: start: 20071214

REACTIONS (1)
  - Diabetes mellitus [Not Recovered/Not Resolved]
